FAERS Safety Report 14119166 (Version 1)
Quarter: 2017Q4

REPORT INFORMATION
  Report Type: Report from Study
  Country: DE (occurrence: DE)
  Receive Date: 20171024
  Receipt Date: 20171024
  Transmission Date: 20180321
  Serious: Yes (Other)
  Sender: FDA-Public Use
  Company Number: DE-ROCHE-2007441

PATIENT

DRUGS (3)
  1. 5-FU [Suspect]
     Active Substance: FLUOROURACIL
     Indication: RECTAL CANCER
     Dosage: 250 MG/M2 OR 1000 MG/M2 ON DAYS 1-5 AND 29-33 OR 250 MG/M2 ON DAYS 1-14 AND 29-35
     Route: 065
  2. CAPECITABINE. [Suspect]
     Active Substance: CAPECITABINE
     Indication: RECTAL CANCER
     Route: 065
  3. OXALIPLATIN. [Suspect]
     Active Substance: OXALIPLATIN
     Indication: RECTAL CANCER
     Dosage: ON DAY 1, 8, AND 29
     Route: 065

REACTIONS (31)
  - Skin toxicity [Unknown]
  - Mucous stools [Unknown]
  - Constipation [Unknown]
  - Abdominal distension [Unknown]
  - Anal incontinence [Unknown]
  - Abdominal pain [Unknown]
  - Diarrhoea [Unknown]
  - Alopecia [Unknown]
  - Anxiety [Unknown]
  - Feeling abnormal [Unknown]
  - Erectile dysfunction [Unknown]
  - Cystitis [Unknown]
  - Urinary incontinence [Unknown]
  - Weight abnormal [Unknown]
  - Pollakiuria [Unknown]
  - Micturition disorder [Unknown]
  - Dysgeusia [Unknown]
  - Stoma complication [Unknown]
  - Urinary retention [Unknown]
  - Enteritis [Unknown]
  - Proctitis [Unknown]
  - Ill-defined disorder [Unknown]
  - Dyspareunia [Unknown]
  - Abnormal faeces [Unknown]
  - Haematochezia [Unknown]
  - Dysuria [Unknown]
  - Proctalgia [Unknown]
  - Nausea [Unknown]
  - Dry mouth [Unknown]
  - Gastrointestinal motility disorder [Unknown]
  - Balanoposthitis [Unknown]
